FAERS Safety Report 4333975-X (Version None)
Quarter: 2004Q2

REPORT INFORMATION
  Report Type: 
  Country: None (occurrence: None)
  Receive Date: 20040402
  Receipt Date: 20040317
  Transmission Date: 20050107
  Serious: Yes (Hospitalization)
  Sender: FDA-Public Use
  Company Number: 2004US002053

PATIENT
  Age: 22 Year
  Sex: Female

DRUGS (6)
  1. ALOXI [Suspect]
     Indication: PROPHYLAXIS OF NAUSEA AND VOMITING
     Dosage: 0.25MG, QD, INTRAVENOUS
     Route: 042
     Dates: start: 20040315, end: 20040317
  2. IBUPROFEN [Concomitant]
  3. KYTRIL [Concomitant]
  4. CISPLATIN [Concomitant]
  5. ETOPOSIDE [Concomitant]
  6. BLEOMYCIN [Concomitant]

REACTIONS (4)
  - BLOOD PRESSURE INCREASED [None]
  - DYSPHONIA [None]
  - HEADACHE [None]
  - SINUS BRADYCARDIA [None]
